FAERS Safety Report 10880668 (Version 3)
Quarter: 2015Q2

REPORT INFORMATION
  Report Type: Spontaneous
  Country: IT (occurrence: IT)
  Receive Date: 20150303
  Receipt Date: 20150615
  Transmission Date: 20150821
  Serious: Yes (Other)
  Sender: FDA-Public Use
  Company Number: IT-MERCK-1502ITA011994

PATIENT
  Age: 26 Year
  Sex: Female

DRUGS (3)
  1. MINIAS [Suspect]
     Active Substance: LORMETAZEPAM
     Dosage: 60 MG, TOTAL
     Route: 048
     Dates: start: 20140910, end: 20140910
  2. MELATONIN [Suspect]
     Active Substance: MELATONIN
     Dosage: UNK
     Dates: start: 20140910, end: 20140910
  3. DESLORATADINE. [Suspect]
     Active Substance: DESLORATADINE
     Dosage: 5 MG, TOTAL
     Route: 048
     Dates: start: 20140910, end: 20140910

REACTIONS (6)
  - Miosis [Recovering/Resolving]
  - Hypotension [Recovering/Resolving]
  - Hypokalaemia [Recovering/Resolving]
  - Sopor [Recovering/Resolving]
  - Anaemia [Recovering/Resolving]
  - Drug abuse [Recovering/Resolving]

NARRATIVE: CASE EVENT DATE: 20140910
